FAERS Safety Report 21237558 (Version 1)
Quarter: 2022Q3

REPORT INFORMATION
  Report Type: Spontaneous
  Country: US (occurrence: US)
  Receive Date: 20220822
  Receipt Date: 20220822
  Transmission Date: 20221026
  Serious: No
  Sender: FDA-Public Use
  Company Number: US-BRISTOL-MYERS SQUIBB COMPANY-2022-093457

PATIENT
  Age: 67 Year
  Sex: Female
  Weight: 57.80 kg

DRUGS (1)
  1. REVLIMID [Suspect]
     Active Substance: LENALIDOMIDE
     Indication: Plasma cell myeloma
     Dosage: 10 MILLIGRAM, DAILY DAYS 1-21 EVERY 28 DAYS
     Route: 048
     Dates: start: 20220501

REACTIONS (1)
  - Flatulence [Unknown]
